FAERS Safety Report 9343350 (Version 1)
Quarter: 2013Q2

REPORT INFORMATION
  Report Type: Spontaneous
  Country: US (occurrence: US)
  Receive Date: 20130612
  Receipt Date: 20130612
  Transmission Date: 20140414
  Serious: No
  Sender: FDA-Public Use
  Company Number: US-B.I. PHARMACEUTICALS,INC./RIDGEFIELD-2013-BI-15841BP

PATIENT
  Age: 73 Year
  Sex: Female

DRUGS (3)
  1. COMBIVENT [Suspect]
     Indication: EMPHYSEMA
     Dosage: STRENGTH: 18 MCG / 103 MCG; DAILY DOSE: 72 MCG / 412 MCG
     Route: 055
     Dates: start: 2009, end: 20130530
  2. COMBIVENT [Suspect]
     Indication: EMPHYSEMA
     Dosage: STRENGTH: 20 MCG / 100 MCG; DAILY DOSE: 80 MCG / 400 MCG
     Route: 055
     Dates: start: 20130531
  3. ASPIRIN [Concomitant]
     Indication: HEADACHE
     Route: 048
     Dates: start: 20130531

REACTIONS (3)
  - Choking [Not Recovered/Not Resolved]
  - Cough [Not Recovered/Not Resolved]
  - Headache [Not Recovered/Not Resolved]
